FAERS Safety Report 22155292 (Version 1)
Quarter: 2023Q1

REPORT INFORMATION
  Report Type: Spontaneous
  Country: CN (occurrence: None)
  Receive Date: 20230330
  Receipt Date: 20230330
  Transmission Date: 20230417
  Serious: Yes (Other)
  Sender: FDA-Public Use
  Company Number: CN-ROCHE-3316333

PATIENT

DRUGS (18)
  1. AVASTIN [Suspect]
     Active Substance: BEVACIZUMAB
     Indication: Squamous cell carcinoma of the hypopharynx
     Route: 065
  2. AVASTIN [Suspect]
     Active Substance: BEVACIZUMAB
     Indication: Oesophageal carcinoma
  3. TAXOL [Concomitant]
     Active Substance: PACLITAXEL
     Indication: Squamous cell carcinoma of the hypopharynx
  4. TAXOL [Concomitant]
     Active Substance: PACLITAXEL
     Indication: Oesophageal carcinoma
  5. NEDAPLATIN [Concomitant]
     Active Substance: NEDAPLATIN
     Indication: Squamous cell carcinoma of the hypopharynx
  6. NEDAPLATIN [Concomitant]
     Active Substance: NEDAPLATIN
     Indication: Oesophageal carcinoma
  7. PEMBROLIZUMAB [Concomitant]
     Active Substance: PEMBROLIZUMAB
     Indication: Squamous cell carcinoma of the hypopharynx
  8. PEMBROLIZUMAB [Concomitant]
     Active Substance: PEMBROLIZUMAB
     Indication: Oesophageal carcinoma
  9. GIMERACIL\OTERACIL\TEGAFUR [Concomitant]
     Active Substance: GIMERACIL\OTERACIL\TEGAFUR
     Indication: Squamous cell carcinoma of the hypopharynx
  10. GIMERACIL\OTERACIL\TEGAFUR [Concomitant]
     Active Substance: GIMERACIL\OTERACIL\TEGAFUR
     Indication: Oesophageal carcinoma
  11. APATINIB [Concomitant]
     Active Substance: APATINIB
     Indication: Squamous cell carcinoma of the hypopharynx
  12. APATINIB [Concomitant]
     Active Substance: APATINIB
     Indication: Oesophageal carcinoma
  13. NIMOTUZUMAB [Concomitant]
     Active Substance: NIMOTUZUMAB
     Indication: Squamous cell carcinoma of the hypopharynx
  14. NIMOTUZUMAB [Concomitant]
     Active Substance: NIMOTUZUMAB
     Indication: Oesophageal carcinoma
  15. DURVALUMAB [Concomitant]
     Active Substance: DURVALUMAB
     Indication: Squamous cell carcinoma of the hypopharynx
  16. DURVALUMAB [Concomitant]
     Active Substance: DURVALUMAB
     Indication: Oesophageal carcinoma
  17. OXALIPLATIN [Concomitant]
     Active Substance: OXALIPLATIN
     Indication: Squamous cell carcinoma of the hypopharynx
  18. OXALIPLATIN [Concomitant]
     Active Substance: OXALIPLATIN
     Indication: Oesophageal carcinoma

REACTIONS (8)
  - Immune-mediated lung disease [Unknown]
  - Dyspnoea [Unknown]
  - Swelling [Recovering/Resolving]
  - Neck pain [Recovering/Resolving]
  - Haemorrhage [Unknown]
  - Pyrexia [Unknown]
  - Infection [Unknown]
  - Off label use [Unknown]
